FAERS Safety Report 15366460 (Version 2)
Quarter: 2018Q4

REPORT INFORMATION
  Report Type: Spontaneous
  Country: US (occurrence: US)
  Receive Date: 20180910
  Receipt Date: 20180928
  Transmission Date: 20190204
  Serious: Yes (Life-Threatening)
  Sender: FDA-Public Use
  Company Number: US-LPDUSPRD-20181641

PATIENT
  Age: 41 Year
  Sex: Female
  Weight: 71.3 kg

DRUGS (2)
  1. MIRCERA [Suspect]
     Active Substance: METHOXY POLYETHYLENE GLYCOL-EPOETIN BETA
     Dosage: 225 MCG EVERY 2 WEEKS
     Route: 040
     Dates: start: 20180731, end: 20180731
  2. VENOFER [Suspect]
     Active Substance: IRON SUCROSE
     Dosage: 100 MG EVERY TREATMENT
     Route: 040
     Dates: start: 20180724

REACTIONS (1)
  - Hypersensitivity [Unknown]

NARRATIVE: CASE EVENT DATE: 20180731
